FAERS Safety Report 4313656-9 (Version None)
Quarter: 2004Q1

REPORT INFORMATION
  Report Type: 
  Country: None (occurrence: None)
  Receive Date: 20040304
  Receipt Date: 20040216
  Transmission Date: 20041129
  Serious: Yes (Other)
  Sender: FDA-Public Use
  Company Number: USA030843134

PATIENT
  Age: 56 Year
  Sex: Female
  Weight: 64 kg

DRUGS (8)
  1. FORTEO [Suspect]
     Indication: BONE DENSITY DECREASED
     Dosage: 20 UG/DAY
     Dates: start: 20030724
  2. FORTEO [Suspect]
     Indication: OSTEOPOROSIS
     Dosage: 20 UG/DAY
     Dates: start: 20030724
  3. PREVACID [Concomitant]
  4. CITRACAL (CALCIUM CITRATE) [Concomitant]
  5. CLARINEX [Concomitant]
  6. LIMBITROL [Concomitant]
  7. VITAMIN B-12 [Concomitant]
  8. CARAFATE [Concomitant]

REACTIONS (15)
  - ANXIETY [None]
  - ARTHRALGIA [None]
  - BACK INJURY [None]
  - BACK PAIN [None]
  - BONE PAIN [None]
  - EMOTIONAL DISTRESS [None]
  - INJECTION SITE BURNING [None]
  - INJECTION SITE ERYTHEMA [None]
  - INJECTION SITE HAEMORRHAGE [None]
  - INJECTION SITE PAIN [None]
  - INJECTION SITE STINGING [None]
  - INSOMNIA [None]
  - INTERVERTEBRAL DISC PROTRUSION [None]
  - LIGAMENT INJURY [None]
  - PHARMACEUTICAL PRODUCT COMPLAINT [None]
